FAERS Safety Report 18629913 (Version 1)
Quarter: 2020Q4

REPORT INFORMATION
  Report Type: Spontaneous
  Country: US (occurrence: US)
  Receive Date: 20201217
  Receipt Date: 20201217
  Transmission Date: 20210114
  Serious: No
  Sender: FDA-Public Use
  Company Number: US-OCULAR THERAPEUTIX-2020OCX00022

PATIENT
  Age: 66 Year
  Sex: Female

DRUGS (10)
  1. OMNI [Concomitant]
     Active Substance: STANNOUS FLUORIDE
     Dosage: UNK, 4X/DAY TO LEFT EYE
  2. METOPROLOL TARTRATE. [Concomitant]
     Active Substance: METOPROLOL TARTRATE
     Route: 048
  3. SYSTANE (HYPROMELLOSE 2910 (4000 MPA.S)) [Concomitant]
     Active Substance: HYPROMELLOSE 2910 (4000 MPA.S)
     Dosage: UNK UNK, 1X/DAY IN THE EVENING TO BOTH EYES
  4. REFRESH [Concomitant]
     Active Substance: UNSPECIFIED INGREDIENT
     Dosage: UNK, 3X/DAY TO BOTH EYES AS NEEDED
  5. FLONASE ALLERGY RELIEF [Concomitant]
     Active Substance: FLUTICASONE PROPIONATE
  6. XIIDRA [Concomitant]
     Active Substance: LIFITEGRAST
     Dosage: UNK, 2X/DAY TO BOTH EYES
  7. DEXTENZA [Suspect]
     Active Substance: DEXAMETHASONE
     Indication: CATARACT OPERATION
     Dosage: UNK
     Dates: start: 20200702, end: 20200828
  8. FLAXSEED [Concomitant]
     Active Substance: FLAX SEED
  9. CRESTOR [Concomitant]
     Active Substance: ROSUVASTATIN CALCIUM
     Route: 048
  10. VITAMIN D3 [Concomitant]
     Active Substance: CHOLECALCIFEROL
     Route: 048

REACTIONS (1)
  - Dacryostenosis acquired [Recovered/Resolved]

NARRATIVE: CASE EVENT DATE: 20200828
